FAERS Safety Report 8791608 (Version 1)
Quarter: 2012Q4

REPORT INFORMATION
  Report Type: 
  Country: BR (occurrence: BR)
  Receive Date: 20120918
  Receipt Date: 20120918
  Transmission Date: 20130627
  Serious: Yes (Hospitalization, Other)
  Sender: FDA-Public Use
  Company Number: PHHY2012BR077691

PATIENT
  Age: 73 Year
  Sex: Male

DRUGS (4)
  1. ONBREZ [Suspect]
  2. TIOTROPIUM BROMIDE [Suspect]
     Indication: CHRONIC OBSTRUCTIVE PULMONARY DISEASE
  3. BUDESONIDE\FORMOTEROL [Suspect]
     Indication: CHRONIC OBSTRUCTIVE PULMONARY DISEASE
  4. BUPROPION [Concomitant]

REACTIONS (5)
  - Chronic obstructive pulmonary disease [Recovering/Resolving]
  - Respiratory tract infection [Recovering/Resolving]
  - Left ventricular dysfunction [Unknown]
  - Diastolic dysfunction [Unknown]
  - Fibrosis [Unknown]
